FAERS Safety Report 15373872 (Version 2)
Quarter: 2019Q1

REPORT INFORMATION
  Report Type: Spontaneous
  Country: US (occurrence: US)
  Receive Date: 20180912
  Receipt Date: 20190103
  Transmission Date: 20190417
  Serious: Yes (Other)
  Sender: FDA-Public Use
  Company Number: US-ALKEM LABORATORIES LIMITED-US-ALKEM-2018-07251

PATIENT
  Age: 53 Year
  Sex: Male

DRUGS (2)
  1. QUETIAPINE FUMARATE. [Suspect]
     Active Substance: QUETIAPINE FUMARATE
     Indication: SUICIDE ATTEMPT
     Dosage: UNK
     Route: 065
  2. VENLAFAXINE [Suspect]
     Active Substance: VENLAFAXINE HYDROCHLORIDE
     Indication: PRODUCT USED FOR UNKNOWN INDICATION
     Dosage: UNK
     Route: 065

REACTIONS (10)
  - Neuroleptic malignant syndrome [Recovered/Resolved]
  - Drug abuse [Unknown]
  - Electrocardiogram QRS complex prolonged [Unknown]
  - Drug withdrawal syndrome [Unknown]
  - Seizure [Unknown]
  - Extrapyramidal disorder [Recovered/Resolved]
  - Electrocardiogram QT prolonged [Unknown]
  - Pupillary reflex impaired [Unknown]
  - Sedation [Unknown]
  - Toxicity to various agents [Unknown]
